FAERS Safety Report 4390841-1 (Version None)
Quarter: 2004Q3

REPORT INFORMATION
  Report Type: 
  Country: None (occurrence: None)
  Receive Date: 20040707
  Receipt Date: 20040623
  Transmission Date: 20050211
  Serious: Yes (Hospitalization)
  Sender: FDA-Public Use
  Company Number: JP-BRISTOL-MYERS SQUIBB COMPANY-12624961

PATIENT
  Age: 72 Year
  Sex: Male

DRUGS (2)
  1. MAXIPIME [Suspect]
     Indication: PNEUMONIA
     Route: 042
  2. AZITHROMYCIN [Suspect]
     Indication: PNEUMONIA

REACTIONS (1)
  - HAEMOLYTIC ANAEMIA [None]
